FAERS Safety Report 8508855-6 (Version None)
Quarter: 2012Q3

REPORT INFORMATION
  Report Type: 
  Country: None (occurrence: None)
  Receive Date: 20120713
  Receipt Date: 20120710
  Transmission Date: 20120928
  Serious: Yes (Hospitalization, Other)
  Sender: FDA-Public Use
  Company Number: PHEH2012US011591

PATIENT
  Sex: Female
  Weight: 94.331 kg

DRUGS (15)
  1. RECLAST [Suspect]
     Indication: OSTEOPOROSIS
     Dosage: 5 MG, ONCE A YEAR
     Route: 042
     Dates: start: 20120426
  2. SPIRIVA [Concomitant]
     Dosage: UNK UKN, UNK
  3. BENICAR [Concomitant]
     Dosage: UNK UKN, UNK
  4. ISORBIDE [Concomitant]
     Dosage: UNK UKN, UNK
  5. INSULIN [Concomitant]
     Dosage: UNK UKN, UNK
  6. ALLOPURINOL [Concomitant]
     Dosage: UNK UKN, UNK
  7. ZITHROMAX [Concomitant]
     Dosage: UNK UKN, UNK
  8. ADVAIR DISKUS 100/50 [Concomitant]
     Dosage: UNK UKN, UNK
  9. ATENOLOL [Concomitant]
     Dosage: UNK UKN, UNK
  10. PEPCID [Concomitant]
     Dosage: UNK UKN, UNK
  11. PREDNISONE [Concomitant]
     Dosage: UNK UKN, UNK
  12. VYPORIN [Concomitant]
     Dosage: UNK UKN, UNK
  13. IRON [Concomitant]
     Dosage: UNK UKN, UNK
  14. ASPIRIN [Concomitant]
     Dosage: UNK UKN, UNK
  15. GLIMEPIRIDE [Concomitant]
     Dosage: UNK UKN, UNK

REACTIONS (11)
  - DIARRHOEA [None]
  - BLOOD CREATINE INCREASED [None]
  - NEPHROLITHIASIS [None]
  - PYREXIA [None]
  - NAUSEA [None]
  - ARTHRALGIA [None]
  - RENAL FAILURE ACUTE [None]
  - RENAL ATROPHY [None]
  - VOMITING [None]
  - INFLUENZA LIKE ILLNESS [None]
  - BONE PAIN [None]
